FAERS Safety Report 14128788 (Version 1)
Quarter: 2017Q4

REPORT INFORMATION
  Report Type: Spontaneous
  Country: US (occurrence: US)
  Receive Date: 20171026
  Receipt Date: 20171026
  Transmission Date: 20180321
  Serious: Yes (Other)
  Sender: FDA-Public Use
  Company Number: None

PATIENT
  Sex: Female
  Weight: 117 kg

DRUGS (12)
  1. DULOXETINE HCL [Concomitant]
     Active Substance: DULOXETINE HYDROCHLORIDE
  2. NAPROXEN. [Concomitant]
     Active Substance: NAPROXEN
  3. ZINC. [Concomitant]
     Active Substance: ZINC
  4. SODIUM BICARBONATE. [Suspect]
     Active Substance: SODIUM BICARBONATE
     Indication: SKIN COSMETIC PROCEDURE
     Dates: start: 20170606
  5. VITAMIN C [Concomitant]
     Active Substance: ASCORBIC ACID
  6. VITAMIN D [Concomitant]
     Active Substance: CHOLECALCIFEROL
  7. VITAMIN E [Concomitant]
     Active Substance: .ALPHA.-TOCOPHEROL
  8. PHENTERMINE. [Concomitant]
     Active Substance: PHENTERMINE
  9. VITAMIN A [Concomitant]
     Active Substance: VITAMIN A
  10. MAGNESIUM [Concomitant]
     Active Substance: MAGNESIUM
  11. VITAMIN B [Concomitant]
     Active Substance: VITAMIN B
  12. CALCIUM [Concomitant]
     Active Substance: CALCIUM

REACTIONS (5)
  - Scar [None]
  - Suture rupture [None]
  - Wound [None]
  - Postoperative wound complication [None]
  - Impaired healing [None]

NARRATIVE: CASE EVENT DATE: 20170606
